FAERS Safety Report 15932635 (Version 1)
Quarter: 2019Q1

REPORT INFORMATION
  Report Type: Spontaneous
  Country: FR (occurrence: FR)
  Receive Date: 20190207
  Receipt Date: 20190207
  Transmission Date: 20190417
  Serious: Yes (Hospitalization)
  Sender: FDA-Public Use
  Company Number: FR-PFIZER INC-2019047758

PATIENT
  Age: 77 Year
  Sex: Male
  Weight: 101 kg

DRUGS (2)
  1. FUCIDINE [FUSIDATE SODIUM] [Suspect]
     Active Substance: FUSIDATE SODIUM
     Indication: OSTEITIS
     Dosage: 1500 MG, 1X/DAY
     Route: 048
     Dates: start: 20181214, end: 20190106
  2. DALACINE [Suspect]
     Active Substance: CLINDAMYCIN
     Indication: OSTEITIS
     Dosage: 2400 MG, 1X/DAY
     Route: 048
     Dates: start: 20181214, end: 20190106

REACTIONS (4)
  - Eosinophilia [Not Recovered/Not Resolved]
  - Erythema [Recovering/Resolving]
  - Purpura [Not Recovered/Not Resolved]
  - Pruritus [Recovering/Resolving]

NARRATIVE: CASE EVENT DATE: 20181231
